FAERS Safety Report 17412087 (Version 1)
Quarter: 2020Q1

REPORT INFORMATION
  Report Type: Spontaneous
  Country: GB (occurrence: GB)
  Receive Date: 20200213
  Receipt Date: 20200213
  Transmission Date: 20200409
  Serious: Yes (Other)
  Sender: FDA-Public Use
  Company Number: GB-TEVA-2020-GB-1185348

PATIENT
  Age: 49 Year
  Sex: Male

DRUGS (3)
  1. MELOXICAM. [Suspect]
     Active Substance: MELOXICAM
     Indication: ANTIINFLAMMATORY THERAPY
     Dosage: 15 MILLIGRAM
     Route: 048
     Dates: start: 20191231, end: 20200122
  2. ACETAMINOPHEN AND CODEINE [Concomitant]
     Active Substance: ACETAMINOPHEN\CODEINE PHOSPHATE
  3. FLUCLOXACILLIN [Concomitant]
     Active Substance: FLUCLOXACILLIN

REACTIONS (3)
  - Skin ulcer [Unknown]
  - Erythema [Unknown]
  - Oedema [Unknown]

NARRATIVE: CASE EVENT DATE: 20200111
